FAERS Safety Report 5560268-5 (Version None)
Quarter: 2007Q4

REPORT INFORMATION
  Report Type: 
  Country: None (occurrence: None)
  Receive Date: 20071214
  Receipt Date: 20071103
  Transmission Date: 20080405
  Serious: No
  Sender: FDA-Public Use
  Company Number: US-ABBOTT-07P-163-0423414-00

PATIENT
  Age: 31 Year
  Sex: Female
  Weight: 55.842 kg

DRUGS (7)
  1. HUMIRA [Suspect]
     Indication: CROHN'S DISEASE
     Route: 058
     Dates: start: 20071101
  2. HUMIRA [Suspect]
     Route: 058
     Dates: end: 20071101
  3. HUMIRA [Suspect]
     Route: 058
  4. HUMIRA [Suspect]
     Dosage: LOADING DOSE
     Route: 058
     Dates: start: 20070401, end: 20070401
  5. PREDNISONE [Suspect]
     Indication: CROHN'S DISEASE
  6. PREDNISONE [Concomitant]
  7. MERCAPTOPURINE [Concomitant]
     Indication: CROHN'S DISEASE
     Route: 048

REACTIONS (2)
  - HYPERTENSION [None]
  - PALPITATIONS [None]
